FAERS Safety Report 5340940-2 (Version None)
Quarter: 2007Q2

REPORT INFORMATION
  Report Type: 
  Country: None (occurrence: None)
  Receive Date: 20070405
  Receipt Date: 20061102
  Transmission Date: 20071010
  Serious: No
  Sender: FDA-Public Use
  Company Number: US200606000377

PATIENT
  Age: 76 Year
  Sex: Female

DRUGS (6)
  1. CYMBALTA [Suspect]
     Indication: BIPOLAR DISORDER
     Dosage: SEE IMAGE
     Dates: start: 20051001
  2. CYMBALTA [Suspect]
     Indication: BIPOLAR DISORDER
     Dosage: SEE IMAGE
     Dates: start: 20060801
  3. LAMICTAL [Concomitant]
  4. SEROQUEL [Concomitant]
  5. EFFEXOR [Concomitant]
  6. WELLBUTRIN [Concomitant]

REACTIONS (8)
  - ALOPECIA [None]
  - CATARACT [None]
  - COLD SWEAT [None]
  - CONSTIPATION [None]
  - HYPERHIDROSIS [None]
  - INSOMNIA [None]
  - VISION BLURRED [None]
  - VISUAL DISTURBANCE [None]
